FAERS Safety Report 8991248 (Version 8)
Quarter: 2015Q3

REPORT INFORMATION
  Report Type: Report from Study
  Country: CA (occurrence: IN)
  Receive Date: 20121231
  Receipt Date: 20150817
  Transmission Date: 20151125
  Serious: Yes (Hospitalization, Other)
  Sender: FDA-Public Use
  Company Number: CA-ROCHE-1173009

PATIENT
  Age: 50 Year
  Sex: Female
  Weight: 61.29 kg

DRUGS (7)
  1. OMALIZUMAB [Suspect]
     Active Substance: OMALIZUMAB
     Route: 058
     Dates: start: 20130712
  2. OMALIZUMAB [Suspect]
     Active Substance: OMALIZUMAB
     Route: 058
  3. OMALIZUMAB [Suspect]
     Active Substance: OMALIZUMAB
     Route: 058
  4. OMALIZUMAB [Suspect]
     Active Substance: OMALIZUMAB
     Route: 058
     Dates: start: 20091016
  5. OMALIZUMAB [Suspect]
     Active Substance: OMALIZUMAB
     Indication: ASTHMA
     Dosage: 150 MG, Q4W
     Route: 058
     Dates: start: 20070119
  6. OMALIZUMAB [Suspect]
     Active Substance: OMALIZUMAB
     Route: 058
     Dates: start: 20090819
  7. OMALIZUMAB [Suspect]
     Active Substance: OMALIZUMAB
     Route: 058
     Dates: start: 20090918

REACTIONS (15)
  - Asthma [Recovering/Resolving]
  - Asthenia [Unknown]
  - Blood iron decreased [Unknown]
  - Malaise [Recovering/Resolving]
  - Vitamin B12 decreased [Unknown]
  - Feeling abnormal [Unknown]
  - Pneumonia [Unknown]
  - Anxiety [Not Recovered/Not Resolved]
  - Nasopharyngitis [Unknown]
  - Pharyngitis [Unknown]
  - Respiratory tract congestion [Unknown]
  - Dysphonia [Unknown]
  - Heart rate decreased [Unknown]
  - Drug ineffective [Unknown]
  - Fungal infection [Unknown]

NARRATIVE: CASE EVENT DATE: 20090918
